FAERS Safety Report 4528141-9 (Version None)
Quarter: 2004Q4

REPORT INFORMATION
  Report Type: 
  Country: None (occurrence: None)
  Receive Date: 20041215
  Receipt Date: 20041203
  Transmission Date: 20050328
  Serious: Yes (Life-Threatening, Hospitalization)
  Sender: FDA-Public Use
  Company Number: ZA-MERCK-0412ZAF00006

PATIENT
  Age: 67 Year
  Sex: Male

DRUGS (5)
  1. INVANZ [Suspect]
     Indication: SEPSIS
     Route: 042
     Dates: start: 20040701
  2. LOPRAZOLAM MESYLATE [Concomitant]
     Indication: INSOMNIA
     Route: 048
  3. PANTOPRAZOLE SODIUM [Concomitant]
     Route: 048
  4. ENOXAPARIN SODIUM [Concomitant]
     Route: 058
  5. PERINDOPRIL ERBUMINE [Concomitant]
     Indication: HYPERTENSION
     Route: 048

REACTIONS (1)
  - DEPRESSED LEVEL OF CONSCIOUSNESS [None]
